FAERS Safety Report 8561381-0 (Version None)
Quarter: 2012Q3

REPORT INFORMATION
  Report Type: 
  Country: None (occurrence: None)
  Receive Date: 20120802
  Receipt Date: 20120723
  Transmission Date: 20120928
  Serious: Yes (Hospitalization)
  Sender: FDA-Public Use
  Company Number: US-GLAXOSMITHKLINE-A0835777A

PATIENT
  Age: 58 Year
  Sex: Female

DRUGS (1)
  1. AVANDIA [Suspect]
     Indication: TYPE 2 DIABETES MELLITUS
     Dosage: 4MG PER DAY
     Route: 048
     Dates: start: 20030311, end: 20050801

REACTIONS (9)
  - VIITH NERVE PARALYSIS [None]
  - DYSPNOEA [None]
  - CEREBROVASCULAR ACCIDENT [None]
  - MYOCARDIAL ISCHAEMIA [None]
  - ARRHYTHMIA [None]
  - NEPHROPATHY [None]
  - SCAR [None]
  - CHEST PAIN [None]
  - MYOCARDIAL INFARCTION [None]
